FAERS Safety Report 6126096-7 (Version None)
Quarter: 2009Q1

REPORT INFORMATION
  Report Type: 
  Country: None (occurrence: None)
  Receive Date: 20090317
  Receipt Date: 20090302
  Transmission Date: 20090719
  Serious: Yes (Other)
  Sender: FDA-Public Use
  Company Number: 186472ISR

PATIENT
  Age: 69 Year
  Sex: Female

DRUGS (1)
  1. LITHIUM CARBONATE [Suspect]
     Indication: RENAL TRANSPLANT
     Dosage: 1200 MG, 400 MG

REACTIONS (1)
  - PARKINSONISM [None]
